FAERS Safety Report 11755556 (Version 1)
Quarter: 2015Q4

REPORT INFORMATION
  Report Type: Spontaneous
  Country: US (occurrence: US)
  Receive Date: 20151119
  Receipt Date: 20151119
  Transmission Date: 20160304
  Serious: Yes (Other)
  Sender: FDA-Public Use
  Company Number: US-PFIZER INC-2015393156

PATIENT
  Age: 77 Year
  Sex: Female
  Weight: 61 kg

DRUGS (20)
  1. LOSARTAN K [Concomitant]
     Indication: HYPERTENSION
     Dosage: 100 MG, AT NIGHT
     Route: 048
  2. VITAMIN D3 [Concomitant]
     Active Substance: CHOLECALCIFEROL
     Indication: VITAMIN D DECREASED
     Dosage: 2 DF, EVERY NIGHT
  3. PRISTIQ EXTENDED RELEASE [Suspect]
     Active Substance: DESVENLAFAXINE SUCCINATE
     Indication: ABNORMAL DREAMS
     Dosage: 25 MG, 1X/DAY
     Route: 048
     Dates: start: 20151105, end: 20151110
  4. TUNA OMEGA [Concomitant]
     Indication: BLOOD CHOLESTEROL
     Dosage: 2 DF, EVERY NIGHT
  5. TUNA OMEGA [Concomitant]
     Indication: PAIN
  6. TENORMIN [Concomitant]
     Active Substance: ATENOLOL
     Indication: HYPERTENSION
     Dosage: 50 MG, EVERY 8 HOURS
     Route: 048
  7. CALCIUM LACTATE [Concomitant]
     Active Substance: CALCIUM LACTATE
     Indication: BONE DISORDER
     Dosage: 2 DF, EVERY NIGHT
     Dates: start: 20150102
  8. PROBIOTIC [Concomitant]
     Active Substance: PROBIOTICS NOS
     Indication: IRRITABLE BOWEL SYNDROME
     Dosage: 35 BILLION, 2 DF, ONE IN MORNING AND ONE AT NIGHT
     Dates: start: 2009
  9. XANAX [Concomitant]
     Active Substance: ALPRAZOLAM
     Indication: PANIC ATTACK
     Dosage: 0.25 MG, EVERY 8 HOURS
     Route: 048
  10. CALCIUM MAGNESIUM + ZINC [Concomitant]
     Indication: BONE DISORDER
     Dosage: 3 DF, NIGHTLY
     Dates: start: 2009
  11. COENZYME A/VITAMIN B COMPLEX [Concomitant]
     Indication: VITAMIN SUPPLEMENTATION
     Dosage: 1 DF, DAILY
     Route: 048
     Dates: start: 2009
  12. VITAMIN B12 [Concomitant]
     Active Substance: CYANOCOBALAMIN
     Indication: FATIGUE
     Dosage: 1 DF, EVERY 3 WEEKS
     Route: 058
     Dates: start: 2009
  13. MAGNESIUM OXIDE. [Concomitant]
     Active Substance: MAGNESIUM OXIDE
     Indication: DEHYDRATION
     Dosage: 400 MG, 2X/DAY
     Dates: start: 20151106
  14. SPIRONOLACTONE. [Concomitant]
     Active Substance: SPIRONOLACTONE
     Indication: DIURETIC THERAPY
     Dosage: 12.5 MG, 1X/DAY; 25 MG TABLET TAKE 1/2 TABLET ONCE A DAY
  15. FOLACIN-12 [Concomitant]
     Dosage: 1 DF, DAILY
  16. PRISTIQ EXTENDED RELEASE [Suspect]
     Active Substance: DESVENLAFAXINE SUCCINATE
     Indication: NEURALGIA
  17. ASA [Concomitant]
     Active Substance: ASPIRIN
     Indication: PROPHYLAXIS
     Dosage: 81 MG, EVERY NIGHT
     Route: 048
     Dates: start: 1970
  18. ARMOUR THYROID [Concomitant]
     Active Substance: THYROID, PORCINE\THYROID, UNSPECIFIED
     Indication: THYROID DISORDER
     Dosage: 30 MG, 1X/DAY
     Route: 048
     Dates: start: 2009
  19. TYLENOL EXTRA STRENGTH [Concomitant]
     Active Substance: ACETAMINOPHEN
     Dosage: 2 DF, AS NEEDED
  20. TUNA OMEGA [Concomitant]
     Indication: CARDIOVASCULAR EVENT PROPHYLAXIS

REACTIONS (17)
  - Memory impairment [Recovering/Resolving]
  - Feeling abnormal [Unknown]
  - Nausea [Recovering/Resolving]
  - Panic attack [Recovered/Resolved]
  - Headache [Recovering/Resolving]
  - Discomfort [Recovering/Resolving]
  - Flushing [Recovering/Resolving]
  - Erythema [Recovering/Resolving]
  - Somnolence [Unknown]
  - Dizziness [Recovering/Resolving]
  - Confusional state [Recovering/Resolving]
  - Diarrhoea [Not Recovered/Not Resolved]
  - Hypertension [Recovering/Resolving]
  - Muscle spasms [Recovered/Resolved]
  - Feeling jittery [Recovered/Resolved]
  - Tinnitus [Recovered/Resolved]
  - Product use issue [Unknown]

NARRATIVE: CASE EVENT DATE: 201511
